FAERS Safety Report 6601098-2 (Version None)
Quarter: 2010Q1

REPORT INFORMATION
  Report Type: 
  Country: None (occurrence: None)
  Receive Date: 20100224
  Receipt Date: 20100224
  Transmission Date: 20100710
  Serious: Yes (Other)
  Sender: FDA-Public Use
  Company Number: None

PATIENT
  Sex: Female

DRUGS (1)
  1. BENICAR [Suspect]
     Dosage: ONE DAILY PO
     Route: 048
     Dates: start: 20090101

REACTIONS (2)
  - DYSGEUSIA [None]
  - PRODUCT ODOUR ABNORMAL [None]
